FAERS Safety Report 12573245 (Version 1)
Quarter: 2016Q3

REPORT INFORMATION
  Report Type: Spontaneous
  Country: JP (occurrence: JP)
  Receive Date: 20160720
  Receipt Date: 20160720
  Transmission Date: 20161109
  Serious: Yes (Death, Other)
  Sender: FDA-Public Use
  Company Number: JP-SUN PHARMACEUTICAL INDUSTRIES LTD-2016RR-120535

PATIENT
  Age: 64 Year
  Sex: Female

DRUGS (11)
  1. BUSULFAN. [Concomitant]
     Active Substance: BUSULFAN
     Indication: ADULT T-CELL LYMPHOMA/LEUKAEMIA
     Dosage: 0.8 MG/KG X 4/DAY
     Route: 065
  2. VINDESINE [Suspect]
     Active Substance: VINDESINE
     Indication: ADULT T-CELL LYMPHOMA/LEUKAEMIA
     Route: 005
  3. TACROLIMUS. [Suspect]
     Active Substance: TACROLIMUS
     Indication: PROPHYLAXIS AGAINST GRAFT VERSUS HOST DISEASE
     Route: 065
  4. PREDNISOLONE. [Suspect]
     Active Substance: PREDNISOLONE
     Indication: ADULT T-CELL LYMPHOMA/LEUKAEMIA
     Route: 065
  5. ETOPOSIDE. [Suspect]
     Active Substance: ETOPOSIDE
     Indication: ADULT T-CELL LYMPHOMA/LEUKAEMIA
     Route: 065
  6. FLUDARABINE [Concomitant]
     Active Substance: FLUDARABINE PHOSPHATE
     Indication: ADULT T-CELL LYMPHOMA/LEUKAEMIA
     Dosage: 25 MG/M2, UNK
     Route: 065
  7. DOXORUBICIN [Suspect]
     Active Substance: DOXORUBICIN
     Indication: ADULT T-CELL LYMPHOMA/LEUKAEMIA
     Route: 065
  8. CYCLOPHOSPHAMIDE. [Suspect]
     Active Substance: CYCLOPHOSPHAMIDE
     Indication: ADULT T-CELL LYMPHOMA/LEUKAEMIA
     Route: 065
  9. METHOTREXATE. [Suspect]
     Active Substance: METHOTREXATE
     Indication: PROPHYLAXIS AGAINST GRAFT VERSUS HOST DISEASE
     Route: 065
  10. CARBOPLATIN. [Suspect]
     Active Substance: CARBOPLATIN
     Indication: ADULT T-CELL LYMPHOMA/LEUKAEMIA
     Route: 065
  11. VINCRISTINE [Suspect]
     Active Substance: VINCRISTINE
     Indication: ADULT T-CELL LYMPHOMA/LEUKAEMIA
     Route: 065

REACTIONS (5)
  - Human herpesvirus 6 infection [Fatal]
  - Seizure [Unknown]
  - Meningoencephalitis herpetic [Fatal]
  - Lung disorder [Unknown]
  - Cytomegalovirus infection [Recovering/Resolving]
